FAERS Safety Report 4448433-1 (Version None)
Quarter: 2004Q3

REPORT INFORMATION
  Report Type: 
  Country: None (occurrence: None)
  Receive Date: 20040729
  Receipt Date: 20030805
  Transmission Date: 20050211
  Serious: Yes (Other)
  Sender: FDA-Public Use
  Company Number: NSADSS2003023983

PATIENT
  Age: 7 Year
  Sex: Male

DRUGS (3)
  1. RISPERDAL [Suspect]
     Indication: ATTENTION DEFICIT/HYPERACTIVITY DISORDER
     Dosage: 0.25 MG, 1 IN 1 DAY, ORAL
     Route: 048
     Dates: start: 20030301, end: 20030515
  2. TRILEPTAL [Suspect]
     Indication: ANGER
     Dosage: 75 MG, 2 IN 1 DAY
     Dates: start: 20030514
  3. DEXTROAMPHETAMINE SULFATE [Concomitant]

REACTIONS (1)
  - DYSTONIA [None]
